FAERS Safety Report 24349671 (Version 1)
Quarter: 2024Q3

REPORT INFORMATION
  Report Type: Spontaneous
  Country: CN (occurrence: CN)
  Receive Date: 20240923
  Receipt Date: 20240923
  Transmission Date: 20241016
  Serious: No
  Sender: ROCHE
  Company Number: CN-ROCHE-3494418

PATIENT
  Age: 66 Year
  Sex: Male
  Weight: 60.0 kg

DRUGS (1)
  1. HERCEPTIN [Suspect]
     Active Substance: TRASTUZUMAB
     Indication: Gastric cancer
     Dosage: DOSING TIME: 22/JUL/2023, 14/AUG/2023, 04/SEP/2023, 24/SEP/2023, 16/OCT/ 2023, 05/NOV/2023, 26/NOV/2
     Route: 041
     Dates: start: 20230722, end: 20231217

REACTIONS (2)
  - Decreased appetite [Recovering/Resolving]
  - Weight decreased [Unknown]

NARRATIVE: CASE EVENT DATE: 20231218
